FAERS Safety Report 8353390-1 (Version None)
Quarter: 2012Q2

REPORT INFORMATION
  Report Type: 
  Country: None (occurrence: None)
  Receive Date: 20120511
  Receipt Date: 20120504
  Transmission Date: 20120825
  Serious: No
  Sender: FDA-Public Use
  Company Number: US-PFIZER INC-2012110389

PATIENT

DRUGS (2)
  1. XALATAN [Suspect]
     Dosage: UNK
  2. TIMOLOL MALEATE [Suspect]
     Dosage: UNK

REACTIONS (3)
  - EYE PRURITUS [None]
  - EYE IRRITATION [None]
  - EYE PAIN [None]
